FAERS Safety Report 25227700 (Version 1)
Quarter: 2025Q2

REPORT INFORMATION
  Report Type: Spontaneous
  Country: GR (occurrence: GR)
  Receive Date: 20250423
  Receipt Date: 20250423
  Transmission Date: 20250716
  Serious: Yes (Other)
  Sender: AMGEN
  Company Number: GR-AMGEN-GRCSP2025078265

PATIENT
  Age: 83 Year
  Sex: Female

DRUGS (13)
  1. ETELCALCETIDE [Suspect]
     Active Substance: ETELCALCETIDE
     Indication: Chronic kidney disease
     Route: 065
  2. AMLODIPINE [Concomitant]
     Active Substance: AMLODIPINE BESYLATE
     Dosage: 5 MILLIGRAM, BID
  3. AMIODARONE [Concomitant]
     Active Substance: AMIODARONE
     Dosage: 200 MILLIGRAM, BID
  4. ATORVASTATIN [Concomitant]
     Active Substance: ATORVASTATIN
     Dosage: 10 MILLIGRAM, BID
  5. CALCIUM CARBONATE [Concomitant]
     Active Substance: CALCIUM CARBONATE
  6. ESOMEPRAZOLE [Concomitant]
     Active Substance: ESOMEPRAZOLE
     Dosage: 40 MILLIGRAM, BID
  7. ACENOCOUMAROL [Concomitant]
     Active Substance: ACENOCOUMAROL
  8. INSULIN GLARGINE [Concomitant]
     Active Substance: INSULIN GLARGINE
  9. ERYTHROPOIETIN [Concomitant]
     Active Substance: ERYTHROPOIETIN
     Dosage: UNK UNK, 3 TIMES/WK,10,000 3/WEEK
  10. IRON [Concomitant]
     Active Substance: IRON
  11. VITAMIN B [Concomitant]
     Active Substance: VITAMIN B
     Dosage: UNK UNK, QWK
  12. LEVOCARNITINE [Concomitant]
     Active Substance: LEVOCARNITINE
  13. Amk [Concomitant]

REACTIONS (6)
  - Myocardial oedema [Unknown]
  - Arteriovenous fistula site haemorrhage [Unknown]
  - Rales [Unknown]
  - Arteriovenous fistula site pseudoaneurysm [Unknown]
  - Staphylococcal infection [Unknown]
  - Vascular access site ulcer [Unknown]
